FAERS Safety Report 8503354-X (Version None)
Quarter: 2012Q3

REPORT INFORMATION
  Report Type: 
  Country: None (occurrence: None)
  Receive Date: 20120711
  Receipt Date: 20120627
  Transmission Date: 20120928
  Serious: Yes (Hospitalization, Disabling, Other)
  Sender: FDA-Public Use
  Company Number: JP-NAPPMUNDI-MAG-2012-0002206

PATIENT
  Age: 38 Year
  Sex: Female

DRUGS (1)
  1. THEOPHYLLINE [Suspect]
     Indication: PRODUCT USED FOR UNKNOWN INDICATION
     Dosage: 100 MG, BID
     Route: 048

REACTIONS (9)
  - OVERDOSE [None]
  - RENAL DISORDER [None]
  - DECUBITUS ULCER [None]
  - ALTERED STATE OF CONSCIOUSNESS [None]
  - PERIPHERAL COLDNESS [None]
  - PNEUMONIA ASPIRATION [None]
  - RHABDOMYOLYSIS [None]
  - MENTAL IMPAIRMENT [None]
  - ANURIA [None]
